FAERS Safety Report 4367894-X (Version None)
Quarter: 2004Q2

REPORT INFORMATION
  Report Type: 
  Country: None (occurrence: None)
  Receive Date: 20040601
  Receipt Date: 20040601
  Transmission Date: 20050107
  Serious: Yes (Hospitalization)
  Sender: FDA-Public Use
  Company Number: None

PATIENT
  Sex: Male

DRUGS (5)
  1. GLEEVEC [Suspect]
     Indication: ACUTE MYELOID LEUKAEMIA
     Dosage: 400 MG QD ORAL
     Route: 048
     Dates: start: 20040326, end: 20040405
  2. GLEEVEC [Suspect]
     Indication: LEUKAEMIA RECURRENT
     Dosage: 400 MG QD ORAL
     Route: 048
     Dates: start: 20040326, end: 20040405
  3. CYTARABINE [Suspect]
     Indication: ACUTE MYELOID LEUKAEMIA
     Dosage: 283 MG QD INTRAVENOUS
     Route: 042
     Dates: start: 20040326, end: 20040402
  4. CYTARABINE [Suspect]
     Indication: LEUKAEMIA RECURRENT
     Dosage: 283 MG QD INTRAVENOUS
     Route: 042
     Dates: start: 20040326, end: 20040402
  5. .. [Concomitant]

REACTIONS (7)
  - ABDOMINAL PAIN [None]
  - BIOPSY BONE MARROW ABNORMAL [None]
  - DIZZINESS POSTURAL [None]
  - DRUG TOXICITY [None]
  - NAUSEA [None]
  - NERVOUS SYSTEM DISORDER [None]
  - RASH [None]
